FAERS Safety Report 19285934 (Version 1)
Quarter: 2021Q2

REPORT INFORMATION
  Report Type: Spontaneous
  Country: US (occurrence: US)
  Receive Date: 20210521
  Receipt Date: 20210521
  Transmission Date: 20210717
  Serious: No
  Sender: FDA-Public Use
  Company Number: US-RADIUS HEALTH INC.-2020US002572

PATIENT
  Age: 59 Year
  Sex: Female

DRUGS (1)
  1. TYMLOS [Suspect]
     Active Substance: ABALOPARATIDE
     Indication: MULTIPLE SCLEROSIS
     Dosage: 80 MCG, QD
     Route: 058

REACTIONS (9)
  - Diplopia [Recovering/Resolving]
  - Amnesia [Recovering/Resolving]
  - Gait disturbance [Recovering/Resolving]
  - Off label use [Unknown]
  - Thyroid disorder [Recovering/Resolving]
  - Confusional state [Unknown]
  - Balance disorder [Recovered/Resolved]
  - Nausea [Unknown]
  - Dizziness [Recovered/Resolved]

NARRATIVE: CASE EVENT DATE: 202007
